FAERS Safety Report 16058441 (Version 2)
Quarter: 2019Q1

REPORT INFORMATION
  Report Type: Spontaneous
  Country: PK (occurrence: PK)
  Receive Date: 20190311
  Receipt Date: 20190318
  Transmission Date: 20190418
  Serious: Yes (Other)
  Sender: FDA-Public Use
  Company Number: PK-NOVOPROD-650607

PATIENT
  Age: 49 Year
  Sex: Male
  Weight: 90 kg

DRUGS (2)
  1. MIXTARD HUMAN 70/30 [Suspect]
     Active Substance: INSULIN HUMAN
     Dosage: 32 IU, BID (18+14 UNIT)
     Route: 058
     Dates: start: 20190218
  2. MIXTARD HUMAN 70/30 [Suspect]
     Active Substance: INSULIN HUMAN
     Indication: TYPE 2 DIABETES MELLITUS
     Dosage: 30 IU, QD (16+14 UNITS)
     Route: 058
     Dates: start: 20190115

REACTIONS (5)
  - Localised infection [Unknown]
  - Diabetes mellitus inadequate control [Not Recovered/Not Resolved]
  - Condition aggravated [Unknown]
  - Hyperkeratosis [Unknown]
  - Blood glucose increased [Unknown]

NARRATIVE: CASE EVENT DATE: 20190115
